FAERS Safety Report 17702132 (Version 1)
Quarter: 2020Q2

REPORT INFORMATION
  Report Type: Spontaneous
  Country: US (occurrence: US)
  Receive Date: 20200423
  Receipt Date: 20200423
  Transmission Date: 20200714
  Serious: No
  Sender: FDA-Public Use
  Company Number: US-ABBVIE-20K-163-3375482-00

PATIENT
  Age: 41 Year
  Sex: Female

DRUGS (3)
  1. NORETHINDRONE. [Concomitant]
     Active Substance: NORETHINDRONE
     Indication: PROPHYLAXIS
     Dates: start: 20200415
  2. ORILISSA [Suspect]
     Active Substance: ELAGOLIX SODIUM
     Indication: VAGINAL HAEMORRHAGE
     Route: 048
     Dates: start: 20200415
  3. METFORMIN [Concomitant]
     Active Substance: METFORMIN HYDROCHLORIDE
     Indication: BLOOD GLUCOSE INCREASED

REACTIONS (3)
  - Drug ineffective [Not Recovered/Not Resolved]
  - Medication error [Not Recovered/Not Resolved]
  - Off label use [Not Recovered/Not Resolved]

NARRATIVE: CASE EVENT DATE: 202004
